FAERS Safety Report 16425367 (Version 1)
Quarter: 2019Q2

REPORT INFORMATION
  Report Type: Spontaneous
  Country: FR (occurrence: FR)
  Receive Date: 20190613
  Receipt Date: 20190613
  Transmission Date: 20190711
  Serious: Yes (Other)
  Sender: FDA-Public Use
  Company Number: FR-PFIZER INC-2019249276

PATIENT
  Age: 37 Year
  Sex: Female

DRUGS (6)
  1. BACLOFENE [Suspect]
     Active Substance: BACLOFEN
     Indication: SUICIDE ATTEMPT
     Dosage: 60 MILLIGRAM
     Route: 048
     Dates: start: 20180815, end: 20180815
  2. LANSOPRAZOLE. [Suspect]
     Active Substance: LANSOPRAZOLE
     Indication: SUICIDE ATTEMPT
     Dosage: 120 MILLIGRAM
     Route: 048
     Dates: start: 20180815, end: 20180815
  3. HYDROXYZINE [Suspect]
     Active Substance: HYDROXYZINE HYDROCHLORIDE
     Indication: SUICIDE ATTEMPT
     Dosage: 500 MILLIGRAM
     Route: 048
     Dates: start: 20180815, end: 20180815
  4. ALPRAZOLAM. [Suspect]
     Active Substance: ALPRAZOLAM
     Indication: SUICIDE ATTEMPT
     Dosage: 4.5 MILLIGRAM
     Route: 048
     Dates: start: 20180815, end: 20180815
  5. TRAMADOL. [Suspect]
     Active Substance: TRAMADOL
     Indication: SUICIDE ATTEMPT
     Dosage: 225 MILLIGRAM
     Route: 048
     Dates: start: 20180815, end: 20180815
  6. PARACETAMOL [Suspect]
     Active Substance: ACETAMINOPHEN
     Indication: SUICIDE ATTEMPT
     Dosage: 1.95 GRAM
     Route: 048
     Dates: start: 20180815, end: 20180815

REACTIONS (3)
  - Toxicity to various agents [Recovered/Resolved]
  - Malaise [Recovered/Resolved]
  - Suicide attempt [Unknown]

NARRATIVE: CASE EVENT DATE: 20180815
